FAERS Safety Report 5283500-4 (Version None)
Quarter: 2007Q2

REPORT INFORMATION
  Report Type: 
  Country: None (occurrence: None)
  Receive Date: 20070402
  Receipt Date: 20070329
  Transmission Date: 20071010
  Serious: Yes (Hospitalization, Disabling)
  Sender: FDA-Public Use
  Company Number: 2007CG00451

PATIENT
  Age: 19818 Day
  Sex: Female
  Weight: 54 kg

DRUGS (3)
  1. ARIMIDEX [Suspect]
     Indication: BREAST CANCER FEMALE
     Route: 048
     Dates: start: 20040101
  2. DECAPEPTYL [Concomitant]
     Indication: BREAST CANCER FEMALE
  3. HERCEPTIN [Concomitant]
     Indication: BREAST CANCER FEMALE

REACTIONS (2)
  - SUDDEN HEARING LOSS [None]
  - VERTIGO [None]
